FAERS Safety Report 5593226-5 (Version None)
Quarter: 2008Q1

REPORT INFORMATION
  Report Type: 
  Country: None (occurrence: None)
  Receive Date: 20080115
  Receipt Date: 20080115
  Transmission Date: 20080703
  Serious: Yes (Life-Threatening, Hospitalization)
  Sender: FDA-Public Use
  Company Number: None

PATIENT
  Sex: Female
  Weight: 112.0385 kg

DRUGS (1)
  1. DARVON [Suspect]
     Indication: PAIN
     Dosage: 1 TO 2 Q 6 TO 8 HRS PO
     Route: 048
     Dates: start: 19910101, end: 20070214

REACTIONS (15)
  - CONFUSIONAL STATE [None]
  - CONVULSION [None]
  - DEPRESSION [None]
  - DYSPNOEA [None]
  - DYSSTASIA [None]
  - FALL [None]
  - GAIT DISTURBANCE [None]
  - HEAD INJURY [None]
  - MEMORY IMPAIRMENT [None]
  - PALPITATIONS [None]
  - PERSONALITY CHANGE [None]
  - RESPIRATORY ARREST [None]
  - SKIN LACERATION [None]
  - SPEECH DISORDER [None]
  - SYNCOPE [None]
